FAERS Safety Report 8541653 (Version 2)
Quarter: 2013Q2

REPORT INFORMATION
  Report Type: Spontaneous
  Country: GB (occurrence: GB)
  Receive Date: 20120502
  Receipt Date: 20130626
  Transmission Date: 20140414
  Serious: Yes (Disabling)
  Sender: FDA-Public Use
  Company Number: GB-PFIZER INC-2012104484

PATIENT
  Age: 66 Year
  Sex: Male
  Weight: 105 kg

DRUGS (9)
  1. AMLODIPINE BESILATE [Suspect]
     Dosage: UNK
     Dates: start: 20120229
  2. LEVOTHYROXINE [Concomitant]
     Dates: start: 20120103
  3. MOXONIDINE [Concomitant]
     Dates: start: 20120103
  4. PERINDOPRIL ERBUMINE [Concomitant]
     Indication: PRODUCT USED FOR UNKNOWN INDICATION
     Dates: start: 20120103
  5. BENDROFLUMETHIAZIDE [Concomitant]
     Dates: start: 20120103
  6. DIAZEPAM [Concomitant]
     Dates: start: 20120103
  7. IRBESARTAN [Concomitant]
     Dosage: UNK
     Dates: start: 20120103
  8. TOPIRAMATE [Concomitant]
     Dates: start: 20120105
  9. DIHYDROCODEINE [Concomitant]
     Dosage: UNK
     Dates: start: 20120105

REACTIONS (4)
  - Tremor [Recovering/Resolving]
  - Fatigue [Recovering/Resolving]
  - Palpitations [Recovering/Resolving]
  - Lethargy [Unknown]
